FAERS Safety Report 8324744-4 (Version None)
Quarter: 2012Q2

REPORT INFORMATION
  Report Type: 
  Country: None (occurrence: None)
  Receive Date: 20120501
  Receipt Date: 20120418
  Transmission Date: 20120825
  Serious: Yes (Hospitalization)
  Sender: FDA-Public Use
  Company Number: SE-NOVOPROD-349880

PATIENT
  Age: 62 Year
  Sex: Female
  Weight: 83 kg

DRUGS (4)
  1. METFORMIN HYDROCHLORIDE [Suspect]
     Indication: TYPE 2 DIABETES MELLITUS
     Dosage: UNK
     Route: 065
     Dates: start: 20120209
  2. INSULATARD FLEXPEN [Suspect]
     Indication: TYPE 2 DIABETES MELLITUS
     Dosage: UNK
     Route: 065
     Dates: start: 20120201, end: 20120201
  3. JANUVIA [Suspect]
     Indication: TYPE 2 DIABETES MELLITUS
     Dosage: UNK
     Route: 065
     Dates: start: 20120201, end: 20120201
  4. DOXYFERM                           /00055701/ [Concomitant]
     Indication: ERYTHEMA MIGRANS

REACTIONS (8)
  - DIARRHOEA [None]
  - MALAISE [None]
  - DYSPNOEA [None]
  - PRURITUS [None]
  - NAUSEA [None]
  - ABDOMINAL PAIN [None]
  - FATIGUE [None]
  - ASTHENIA [None]
